FAERS Safety Report 12961839 (Version 5)
Quarter: 2017Q2

REPORT INFORMATION
  Report Type: Spontaneous
  Country: US (occurrence: US)
  Receive Date: 20161121
  Receipt Date: 20170606
  Transmission Date: 20170830
  Serious: Yes (Hospitalization, Other)
  Sender: FDA-Public Use
  Company Number: US-PFIZER INC-2016537889

PATIENT
  Age: 85 Year
  Sex: Female
  Weight: 44.45 kg

DRUGS (5)
  1. PHOSPHOLINE IODIDE [Suspect]
     Active Substance: ECHOTHIOPHATE IODIDE
     Indication: GLAUCOMA
  2. ALPHAGAN P [Suspect]
     Active Substance: BRIMONIDINE TARTRATE
     Indication: GLAUCOMA
     Dosage: UNK UNK, 3X/DAY (MORNING, NOON AND NIGHT)
     Dates: start: 1999
  3. PHOSPHOLINE IODIDE [Suspect]
     Active Substance: ECHOTHIOPHATE IODIDE
     Indication: INTRAOCULAR PRESSURE INCREASED
     Dosage: UNK, 2X/DAY (TWICE A DAY LEFT EYE, MORNING + EVENING)
     Route: 047
  4. LUMIGAN [Suspect]
     Active Substance: BIMATOPROST
     Indication: GLAUCOMA
     Dosage: UNK UNK, 1X/DAY (ONCE DAILY AT BED TIME)
  5. DORZOLAMIDE W/TIMOLOL [Suspect]
     Active Substance: DORZOLAMIDE HYDROCHLORIDE\TIMOLOL MALEATE
     Indication: GLAUCOMA
     Dosage: UNK, 2X/DAY (MORNING AND EVENING)
     Dates: start: 2012

REACTIONS (3)
  - Drug dose omission [Unknown]
  - Cataract [Unknown]
  - Product quality issue [Unknown]
